FAERS Safety Report 18342285 (Version 1)
Quarter: 2020Q4

REPORT INFORMATION
  Report Type: Other
  Country: US (occurrence: US)
  Receive Date: 20201005
  Receipt Date: 20201005
  Transmission Date: 20210113
  Serious: Yes (Death, Life-Threatening, Hospitalization, Other)
  Sender: FDA-Public Use
  Company Number: US-AJANTA PHARMA USA INC.-2092400

PATIENT
  Age: 67 Year
  Sex: Male

DRUGS (4)
  1. RANOLAZINE (ANDA 210054) [Suspect]
     Active Substance: RANOLAZINE
     Route: 048
  2. CLONAZEPAM. [Concomitant]
     Active Substance: CLONAZEPAM
  3. CLOPIDOGREL [Concomitant]
     Active Substance: CLOPIDOGREL BISULFATE
  4. ATORVASTATIN CALCIUM. [Concomitant]
     Active Substance: ATORVASTATIN CALCIUM

REACTIONS (6)
  - Suicide attempt [Not Recovered/Not Resolved]
  - Seizure [Not Recovered/Not Resolved]
  - Cardiac arrest [Fatal]
  - Confusional state [Not Recovered/Not Resolved]
  - Atrioventricular block first degree [Not Recovered/Not Resolved]
  - Intentional overdose [Fatal]
